FAERS Safety Report 5870684-X (Version None)
Quarter: 2008Q3

REPORT INFORMATION
  Report Type: 
  Country: None (occurrence: None)
  Receive Date: 20080904
  Receipt Date: 20080904
  Transmission Date: 20090109
  Serious: Yes (Hospitalization)
  Sender: FDA-Public Use
  Company Number: PHEH1996US06044

PATIENT
  Sex: Female
  Weight: 62.6 kg

DRUGS (3)
  1. SANDIMMUNE [Suspect]
     Route: 048
     Dates: start: 19941128
  2. IMURAN [Concomitant]
     Dosage: UNSPECIFIED
     Route: 065
  3. PREDNISONE [Concomitant]
     Dosage: UNSPECIFIED
     Route: 065

REACTIONS (2)
  - BLOOD CREATININE INCREASED [None]
  - NEUROTOXICITY [None]
